FAERS Safety Report 6123130-5 (Version None)
Quarter: 2009Q1

REPORT INFORMATION
  Report Type: 
  Country: None (occurrence: None)
  Receive Date: 20090318
  Receipt Date: 20090310
  Transmission Date: 20090719
  Serious: Yes (Other)
  Sender: FDA-Public Use
  Company Number: US-ELI_LILLY_AND_COMPANY-US200903002555

PATIENT
  Sex: Male

DRUGS (2)
  1. HUMULIN 70/30 [Suspect]
     Dosage: 11 U, EACH MORNING
  2. LANTUS [Concomitant]

REACTIONS (2)
  - BLINDNESS UNILATERAL [None]
  - EYE HAEMORRHAGE [None]
